APPROVED DRUG PRODUCT: NILUTAMIDE
Active Ingredient: NILUTAMIDE
Strength: 150MG
Dosage Form/Route: TABLET;ORAL
Application: A207631 | Product #001 | TE Code: AB
Applicant: ANI PHARMACEUTICALS INC
Approved: Jul 15, 2016 | RLD: No | RS: No | Type: RX